FAERS Safety Report 10718982 (Version 2)
Quarter: 2015Q1

REPORT INFORMATION
  Report Type: Spontaneous
  Country: US (occurrence: US)
  Receive Date: 20150119
  Receipt Date: 20150119
  Transmission Date: 20150721
  Serious: No
  Sender: FDA-Public Use
  Company Number: US-UNITED THERAPEUTICS-UNT-2014-002625

PATIENT
  Sex: Female
  Weight: 67.12 kg

DRUGS (3)
  1. ADCIRCA [Concomitant]
     Active Substance: TADALAFIL
     Indication: PRODUCT USED FOR UNKNOWN INDICATION
  2. LETAIRIS [Concomitant]
     Active Substance: AMBRISENTAN
     Indication: PRODUCT USED FOR UNKNOWN INDICATION
  3. REMODULIN [Suspect]
     Active Substance: TREPROSTINIL
     Indication: HEPATIC CIRRHOSIS
     Dosage: 0.016 ?G/KG/MIN, CONTINUING
     Route: 041
     Dates: start: 20140430

REACTIONS (8)
  - Muscle spasms [Unknown]
  - Erythema [Unknown]
  - Pain in extremity [Unknown]
  - Quality of life decreased [Unknown]
  - Decreased appetite [Unknown]
  - Pruritus generalised [Unknown]
  - Rash generalised [Not Recovered/Not Resolved]
  - Nausea [Not Recovered/Not Resolved]

NARRATIVE: CASE EVENT DATE: 2014
